FAERS Safety Report 25124211 (Version 1)
Quarter: 2025Q1

REPORT INFORMATION
  Report Type: Spontaneous
  Country: US (occurrence: US)
  Receive Date: 20250326
  Receipt Date: 20250326
  Transmission Date: 20250409
  Serious: Yes (Other)
  Sender: CSL BEHRING
  Company Number: US-BEH-2025199630

PATIENT
  Age: 23 Month
  Sex: Male

DRUGS (2)
  1. HIZENTRA [Suspect]
     Active Substance: HUMAN IMMUNOGLOBULIN G
     Indication: Hypogammaglobulinaemia
     Dosage: 2 G, QOW (STRENGTH: 0.2 GM/ML)
     Route: 058
     Dates: start: 202401
  2. LIDOCAINE AND PRILOCAINE [Concomitant]
     Active Substance: LIDOCAINE\PRILOCAINE

REACTIONS (3)
  - Seizure [Unknown]
  - Zhu-Tokita-Takenouchi-Kim syndrome [Unknown]
  - Needle issue [Unknown]

NARRATIVE: CASE EVENT DATE: 20250313
